FAERS Safety Report 9928837 (Version 2)
Quarter: 2014Q1

REPORT INFORMATION
  Report Type: Spontaneous
  Country: US (occurrence: US)
  Receive Date: 20140227
  Receipt Date: 20140227
  Transmission Date: 20141002
  Serious: No
  Sender: FDA-Public Use
  Company Number: US-PFIZER INC-2014036391

PATIENT
  Sex: Female

DRUGS (5)
  1. GABAPENTIN [Suspect]
     Indication: DIABETIC NEUROPATHY
     Dosage: UNK
  2. GLUCOPHAGE [Concomitant]
     Dosage: 500 MG, 2X/DAY
     Route: 048
  3. LOSARTAN  W/HYDROCHLOROTHIAZIDE [Concomitant]
     Dosage: 50/12.5 MG 1
     Route: 048
  4. LYRICA [Concomitant]
     Dosage: 50 MG, 1X/DAY
     Route: 048
  5. AMARYL [Concomitant]
     Dosage: 4 MG, 4X/DAY
     Route: 048

REACTIONS (1)
  - Drug ineffective for unapproved indication [Unknown]
